FAERS Safety Report 7473395-2 (Version None)
Quarter: 2011Q2

REPORT INFORMATION
  Report Type: 
  Country: None (occurrence: None)
  Receive Date: 20110511
  Receipt Date: 20101215
  Transmission Date: 20111010
  Serious: Yes (Hospitalization)
  Sender: FDA-Public Use
  Company Number: PHHY2010JP90171

PATIENT
  Age: 68 Year
  Sex: Female

DRUGS (2)
  1. GLEEVEC [Suspect]
     Indication: CHRONIC MYELOID LEUKAEMIA
     Dosage: 400 MG/DAY
  2. PREDNISOLONE [Concomitant]
     Dosage: 30 MG, UNK
     Route: 048

REACTIONS (3)
  - INTERSTITIAL LUNG DISEASE [None]
  - COUGH [None]
  - EOSINOPHILIC PNEUMONIA [None]
